FAERS Safety Report 18612514 (Version 1)
Quarter: 2020Q4

REPORT INFORMATION
  Report Type: Spontaneous
  Country: US (occurrence: US)
  Receive Date: 20201214
  Receipt Date: 20201214
  Transmission Date: 20210114
  Serious: Yes (Other)
  Sender: FDA-Public Use
  Company Number: US-ASTRAZENECA-2020SF64924

PATIENT
  Sex: Female

DRUGS (1)
  1. LYNPARZA [Suspect]
     Active Substance: OLAPARIB
     Dosage: UNKNOWN
     Route: 048

REACTIONS (5)
  - Metastases to lung [Unknown]
  - Metastases to lymph nodes [Not Recovered/Not Resolved]
  - Loss of consciousness [Unknown]
  - Malignant neoplasm progression [Unknown]
  - Ovarian cancer recurrent [Not Recovered/Not Resolved]
